FAERS Safety Report 4620514-9 (Version None)
Quarter: 2005Q1

REPORT INFORMATION
  Report Type: 
  Country: None (occurrence: None)
  Receive Date: 20050324
  Receipt Date: 20050315
  Transmission Date: 20050727
  Serious: Yes (Life-Threatening, Hospitalization)
  Sender: FDA-Public Use
  Company Number: MK200503-0202-1

PATIENT
  Sex: Male

DRUGS (1)
  1. OPTIRAY 320 [Suspect]
     Indication: COMPUTERISED TOMOGRAM
     Dosage: 100ML, IV, ONCE
     Route: 042
     Dates: start: 20050311, end: 20050311

REACTIONS (5)
  - BACK PAIN [None]
  - CARDIAC ARREST [None]
  - DYSPNOEA [None]
  - MEDICATION ERROR [None]
  - VITAL FUNCTIONS ABNORMAL [None]
